FAERS Safety Report 5015077-2 (Version None)
Quarter: 2006Q2

REPORT INFORMATION
  Report Type: 
  Country: None (occurrence: None)
  Receive Date: 20060426
  Receipt Date: 20060119
  Transmission Date: 20061013
  Serious: No
  Sender: FDA-Public Use
  Company Number: 219481

PATIENT
  Age: 40 Year
  Sex: Female

DRUGS (15)
  1. XOLAIR [Suspect]
     Indication: ASTHMA
     Dosage: 150 MG, 1/MONTH
     Dates: start: 20031110
  2. AMITRIPTYLINE HCL [Concomitant]
  3. CLARINEX [Concomitant]
  4. ADVAIR DISKUS 100/50 [Concomitant]
  5. AZMACORT [Concomitant]
  6. GUAIFEN (INGREDIENTS) (GENERIC COMPONENT(S)) [Concomitant]
  7. SINGULAIR [Concomitant]
  8. NEXIUM [Concomitant]
  9. ZANTAC [Concomitant]
  10. CLARITIN [Concomitant]
  11. PULMICORT [Concomitant]
  12. MAXAIR [Concomitant]
  13. RHINOCORT [Concomitant]
  14. PSEODOPHED + GUAIFENSIN COMPOUND (INGREDI (COLD AND SINUS REMEDIES) [Concomitant]
  15. BENADRYL (UNITED STATES) (DIPHENHYDRAMINE HYDROCHLORIDE) [Concomitant]

REACTIONS (1)
  - DRUG EXPOSURE DURING PREGNANCY [None]
